FAERS Safety Report 17052071 (Version 1)
Quarter: 2019Q4

REPORT INFORMATION
  Report Type: Spontaneous
  Country: AU (occurrence: AU)
  Receive Date: 20191120
  Receipt Date: 20191120
  Transmission Date: 20200122
  Serious: Yes (Other)
  Sender: FDA-Public Use
  Company Number: AU-FRESENIUS KABI-FK201912794

PATIENT
  Age: 49 Year
  Sex: Male

DRUGS (1)
  1. METHYLPREDNISOLONE (MANUFACTURER UNKNOWN) [Suspect]
     Active Substance: METHYLPREDNISOLONE
     Indication: MULTIPLE SCLEROSIS
     Dosage: UNKNOWN
     Route: 042

REACTIONS (6)
  - Condition aggravated [Unknown]
  - Disease progression [Unknown]
  - Device related sepsis [Unknown]
  - Retinal haemorrhage [Unknown]
  - Optic neuritis [Unknown]
  - Rebound effect [Unknown]
